FAERS Safety Report 19384992 (Version 1)
Quarter: 2021Q2

REPORT INFORMATION
  Report Type: Spontaneous
  Country: US (occurrence: US)
  Receive Date: 20210608
  Receipt Date: 20210608
  Transmission Date: 20210717
  Serious: No
  Sender: FDA-Public Use
  Company Number: US-HIKMA PHARMACEUTICALS USA INC.-US-H14001-20-05028

PATIENT
  Age: 74 Year
  Sex: Male

DRUGS (7)
  1. AIMOVIG [Suspect]
     Active Substance: ERENUMAB-AOOE
     Indication: PROPHYLAXIS
     Dosage: UNKNOWN
     Route: 065
  2. NURTEC ODT [Suspect]
     Active Substance: RIMEGEPANT SULFATE
     Indication: MIGRAINE
     Route: 048
     Dates: start: 20201014
  3. DEXAMETHASONE. [Suspect]
     Active Substance: DEXAMETHASONE
     Dosage: 1+1 MILIGRAM
     Route: 065
     Dates: start: 20201015
  4. DIHYDROERGOTAMINE [Suspect]
     Active Substance: DIHYDROERGOTAMINE
     Dosage: UNKNOWN
     Route: 042
     Dates: start: 20201012
  5. DEXAMETHASONE. [Suspect]
     Active Substance: DEXAMETHASONE
     Route: 065
     Dates: start: 20201014, end: 20201014
  6. DIHYDROERGOTAMINE [Suspect]
     Active Substance: DIHYDROERGOTAMINE
     Indication: MIGRAINE
     Dosage: UNKNOWN
     Route: 058
  7. DEXAMETHASONE. [Suspect]
     Active Substance: DEXAMETHASONE
     Indication: MIGRAINE
     Dosage: UNKNOWN
     Route: 065
     Dates: end: 20201013

REACTIONS (2)
  - Migraine [Not Recovered/Not Resolved]
  - Drug ineffective [Unknown]

NARRATIVE: CASE EVENT DATE: 20201014
